FAERS Safety Report 19406878 (Version 1)
Quarter: 2021Q2

REPORT INFORMATION
  Report Type: Spontaneous
  Country: US (occurrence: US)
  Receive Date: 20210611
  Receipt Date: 20210611
  Transmission Date: 20210717
  Serious: No
  Sender: FDA-Public Use
  Company Number: US-ELI_LILLY_AND_COMPANY-US202105005634

PATIENT
  Sex: Female

DRUGS (2)
  1. GLIPIZIDE. [Concomitant]
     Active Substance: GLIPIZIDE
     Indication: DIABETES MELLITUS
     Dosage: 4 MG, BID
     Route: 065
  2. TRULICITY [Suspect]
     Active Substance: DULAGLUTIDE
     Indication: DIABETES MELLITUS
     Dosage: 1.5 MG, UNKNOWN
     Route: 058

REACTIONS (15)
  - Nausea [Unknown]
  - Diarrhoea [Unknown]
  - Confusional state [Unknown]
  - Oropharyngeal discomfort [Unknown]
  - Decreased appetite [Unknown]
  - Abdominal pain [Unknown]
  - Nephrolithiasis [Unknown]
  - Dizziness [Unknown]
  - Injection site bruising [Unknown]
  - Vomiting [Unknown]
  - Fatigue [Unknown]
  - Gastrooesophageal reflux disease [Unknown]
  - Injection site pruritus [Unknown]
  - Cardiac disorder [Unknown]
  - Dyspepsia [Unknown]
